FAERS Safety Report 7245124-9 (Version None)
Quarter: 2011Q1

REPORT INFORMATION
  Report Type: 
  Country: None (occurrence: None)
  Receive Date: 20110126
  Receipt Date: 20110114
  Transmission Date: 20110831
  Serious: Yes (Other)
  Sender: FDA-Public Use
  Company Number: IN-SANOFI-AVENTIS-2011SA002657

PATIENT
  Age: 78 Year
  Sex: Male
  Weight: 50 kg

DRUGS (4)
  1. AMIODARONE HCL [Concomitant]
     Route: 065
     Dates: end: 20110111
  2. ASPIRIN [Concomitant]
     Route: 048
  3. ISPAGHULA [Concomitant]
     Route: 048
  4. MULTAQ [Suspect]
     Route: 048
     Dates: start: 20110112, end: 20110113

REACTIONS (4)
  - DRUG INEFFECTIVE [None]
  - TACHYCARDIA [None]
  - HYPOTENSION [None]
  - ATRIAL FIBRILLATION [None]
